FAERS Safety Report 9668830 (Version 1)
Quarter: 2013Q4

REPORT INFORMATION
  Report Type: Spontaneous
  Country: US (occurrence: None)
  Receive Date: 20131104
  Receipt Date: 20131104
  Transmission Date: 20140711
  Serious: Yes (Other)
  Sender: FDA-Public Use
  Company Number: None

PATIENT
  Age: 54 Year
  Sex: Female
  Weight: 59.88 kg

DRUGS (1)
  1. CHANTIX [Suspect]
     Dosage: 1 PILL

REACTIONS (5)
  - Dizziness [None]
  - Headache [None]
  - Blood pressure increased [None]
  - Malaise [None]
  - Feeling abnormal [None]
